FAERS Safety Report 7556914-7 (Version None)
Quarter: 2011Q2

REPORT INFORMATION
  Report Type: 
  Country: None (occurrence: None)
  Receive Date: 20110620
  Receipt Date: 20110606
  Transmission Date: 20111010
  Serious: Yes (Other)
  Sender: FDA-Public Use
  Company Number: PHHY2011CA43594

PATIENT
  Sex: Female

DRUGS (6)
  1. ROCALTROL [Concomitant]
     Dosage: 0.25 MG TIW
  2. CALCIUM CARBONATE [Concomitant]
     Dosage: 500 MG, QD
  3. SYNTHROID [Concomitant]
     Dosage: 0.112 MG, QD
  4. ZOLEDRONIC ACID [Suspect]
     Dosage: 5 MG,
     Route: 042
     Dates: start: 20090801
  5. ZOLEDRONIC ACID [Suspect]
     Dosage: 5 MG,
     Route: 042
     Dates: start: 20100714
  6. ZOLEDRONIC ACID [Suspect]
     Indication: OSTEOPOROSIS
     Dosage: 5 MG,
     Route: 042
     Dates: start: 20080101

REACTIONS (2)
  - FALL [None]
  - SPINAL COMPRESSION FRACTURE [None]
